FAERS Safety Report 12603516 (Version 2)
Quarter: 2016Q3

REPORT INFORMATION
  Report Type: Spontaneous
  Country: IT (occurrence: IT)
  Receive Date: 20160728
  Receipt Date: 20160804
  Transmission Date: 20161109
  Serious: Yes (Hospitalization)
  Sender: FDA-Public Use
  Company Number: IT-GILEAD-2016-0224786

PATIENT
  Age: 43 Year
  Sex: Female

DRUGS (6)
  1. LASIX [Concomitant]
     Active Substance: FUROSEMIDE
     Dosage: 25 UNK, UNK
     Route: 048
  2. LOSARTAN. [Concomitant]
     Active Substance: LOSARTAN
     Dosage: 100 MG, UNK
     Route: 048
  3. SOVALDI [Suspect]
     Active Substance: SOFOSBUVIR
     Indication: HEPATITIS C
     Dosage: 400 MG, QD
     Route: 048
     Dates: start: 20150617, end: 20151207
  4. DOXAZOSIN [Concomitant]
     Active Substance: DOXAZOSIN\DOXAZOSIN MESYLATE
     Dosage: 4 MG, UNK
     Route: 048
  5. DAKLINZA [Suspect]
     Active Substance: DACLATASVIR
     Indication: HEPATITIS C
     Dosage: 60 MG, QD
     Route: 048
     Dates: start: 20150617, end: 20151207
  6. TICLODIPINE [Concomitant]
     Dosage: 250 MG, UNK
     Route: 048

REACTIONS (4)
  - Abdominal pain [Recovered/Resolved]
  - Anaemia [Recovered/Resolved]
  - Asthenia [Recovered/Resolved]
  - Nausea [Recovered/Resolved]

NARRATIVE: CASE EVENT DATE: 20150702
